FAERS Safety Report 26163221 (Version 1)
Quarter: 2025Q4

REPORT INFORMATION
  Report Type: Spontaneous
  Country: GB (occurrence: GB)
  Receive Date: 20251216
  Receipt Date: 20251216
  Transmission Date: 20260118
  Serious: Yes (Death, Hospitalization, Other)
  Sender: PFIZER
  Company Number: GB-JNJFOC-20251176008

PATIENT
  Age: 66 Year
  Sex: Female
  Weight: 46.3 kg

DRUGS (7)
  1. CARBOPLATIN [Suspect]
     Active Substance: CARBOPLATIN
     Indication: Non-small cell lung cancer
     Dosage: 400 MG (DAY 1)
     Dates: start: 20251118, end: 20251118
  2. PEMETREXED [Suspect]
     Active Substance: PEMETREXED
     Indication: Non-small cell lung cancer
     Dosage: 550 MG (DAY 1)
     Dates: start: 20251118, end: 20251118
  3. AMIVANTAMAB [Suspect]
     Active Substance: AMIVANTAMAB
     Indication: Non-small cell lung cancer
     Dosage: 350 MG (D1)
     Dates: start: 20251118, end: 20251118
  4. AMIVANTAMAB [Suspect]
     Active Substance: AMIVANTAMAB
     Dosage: 1050 MG (D2)
     Dates: start: 20251119, end: 20251119
  5. DEXAMETHASONE [Concomitant]
     Active Substance: DEXAMETHASONE
     Dosage: 19.8 MG
     Dates: start: 20251118, end: 20251119
  6. FOSAPREPITANT [Concomitant]
     Active Substance: FOSAPREPITANT
     Indication: Antiemetic supportive care
     Dosage: 150 MG
     Dates: start: 20251118, end: 20251119
  7. ONDANSETRON [Concomitant]
     Active Substance: ONDANSETRON
     Indication: Antiemetic supportive care
     Dosage: 8 MG
     Dates: start: 20251118, end: 20251119

REACTIONS (7)
  - Death [Fatal]
  - Malaise [Unknown]
  - Back pain [Unknown]
  - Blood pressure decreased [Unknown]
  - Infusion related hypersensitivity reaction [Unknown]
  - Tachycardia [Unknown]
  - Off label use [Unknown]

NARRATIVE: CASE EVENT DATE: 20251118
